FAERS Safety Report 4409007-1 (Version None)
Quarter: 2004Q2

REPORT INFORMATION
  Report Type: 
  Country: None (occurrence: None)
  Receive Date: 20040618
  Receipt Date: 20040517
  Transmission Date: 20050107
  Serious: No
  Sender: FDA-Public Use
  Company Number: US-JNJFOC-20040504087

PATIENT
  Age: 26 Year
  Sex: Female
  Weight: 70.3075 kg

DRUGS (1)
  1. ORTHO EVRA [Suspect]
     Indication: CONTRACEPTION
     Dates: start: 20040409

REACTIONS (1)
  - METRORRHAGIA [None]
